FAERS Safety Report 6287940-6 (Version None)
Quarter: 2009Q3

REPORT INFORMATION
  Report Type: 
  Country: None (occurrence: None)
  Receive Date: 20090729
  Receipt Date: 20090722
  Transmission Date: 20100115
  Serious: Yes (Death, Hospitalization)
  Sender: FDA-Public Use
  Company Number: ES-BRISTOL-MYERS SQUIBB COMPANY-14713523

PATIENT
  Age: 54 Year
  Sex: Male

DRUGS (3)
  1. STAVUDINE [Suspect]
     Indication: HIV INFECTION
     Dates: start: 19970601
  2. INDINIVIR SULFATE [Suspect]
     Indication: HIV INFECTION
     Dates: start: 19970601
  3. LAMIVUDINE [Suspect]
     Indication: HIV INFECTION
     Dates: start: 19970601

REACTIONS (1)
  - ACUTE MYELOID LEUKAEMIA [None]
